FAERS Safety Report 23978288 (Version 2)
Quarter: 2024Q2

REPORT INFORMATION
  Report Type: Spontaneous
  Country: ES (occurrence: ES)
  Receive Date: 20240614
  Receipt Date: 20240625
  Transmission Date: 20240715
  Serious: Yes (Death)
  Sender: FDA-Public Use
  Company Number: ES-ELI_LILLY_AND_COMPANY-ES202406009561

PATIENT

DRUGS (2)
  1. RAMUCIRUMAB [Suspect]
     Active Substance: RAMUCIRUMAB
     Indication: Product used for unknown indication
     Dosage: 500 MG, UNKNOWN
     Route: 065
     Dates: start: 20230324
  2. RAMUCIRUMAB [Suspect]
     Active Substance: RAMUCIRUMAB
     Dosage: 100 MG, UNKNOWN
     Route: 065
     Dates: start: 20230515

REACTIONS (1)
  - Death [Fatal]
